FAERS Safety Report 5455870-5 (Version None)
Quarter: 2007Q3

REPORT INFORMATION
  Report Type: 
  Country: None (occurrence: None)
  Receive Date: 20070914
  Receipt Date: 20070914
  Transmission Date: 20080115
  Serious: Yes (Other)
  Sender: FDA-Public Use
  Company Number: None

PATIENT
  Age: 48 Year
  Sex: Female

DRUGS (1)
  1. LACTATED RINGER'S [Suspect]
     Indication: SURGERY
     Dosage: IV DRIP
     Route: 041
     Dates: start: 20070911, end: 20070911

REACTIONS (3)
  - CHEST DISCOMFORT [None]
  - COUGH [None]
  - DYSPNOEA [None]
